FAERS Safety Report 8112347-6 (Version None)
Quarter: 2012Q1

REPORT INFORMATION
  Report Type: 
  Country: None (occurrence: None)
  Receive Date: 20120203
  Receipt Date: 20111115
  Transmission Date: 20120608
  Serious: No
  Sender: FDA-Public Use
  Company Number: US-ASTRAZENECA-2011SE69220

PATIENT
  Age: 55 Year
  Sex: Male

DRUGS (1)
  1. VANDETANIB [Suspect]
     Indication: THYROID CANCER
     Dosage: FILM COATED TABLET
     Route: 048

REACTIONS (5)
  - STOMATITIS [None]
  - NAUSEA [None]
  - FATIGUE [None]
  - DIARRHOEA [None]
  - HEADACHE [None]
